FAERS Safety Report 23745082 (Version 1)
Quarter: 2024Q2

REPORT INFORMATION
  Report Type: Spontaneous
  Country: FR (occurrence: FR)
  Receive Date: 20240416
  Receipt Date: 20240416
  Transmission Date: 20240716
  Serious: No
  Sender: FDA-Public Use
  Company Number: FR-Blueprint Medicines Corporation-SO-FR-2024-000762

PATIENT
  Sex: Female
  Weight: 73 kg

DRUGS (1)
  1. AVAPRITINIB [Suspect]
     Active Substance: AVAPRITINIB
     Indication: Mastocytic leukaemia
     Route: 065
     Dates: start: 20231025, end: 20240112

REACTIONS (1)
  - Disease progression [Unknown]
